FAERS Safety Report 8615271-5 (Version None)
Quarter: 2012Q3

REPORT INFORMATION
  Report Type: 
  Country: None (occurrence: None)
  Receive Date: 20120815
  Receipt Date: 20120815
  Transmission Date: 20120928
  Serious: Yes (Other)
  Sender: FDA-Public Use
  Company Number: None

PATIENT
  Age: 40 Year
  Sex: Female
  Weight: 143.7903 kg

DRUGS (2)
  1. VIIBRYD [Suspect]
     Indication: POST-TRAUMATIC STRESS DISORDER
     Dosage: 1 TABLET DAILY PO
     Route: 048
     Dates: start: 20120201, end: 20120807
  2. VIIBRYD [Suspect]
     Indication: DEPRESSION
     Dosage: 1 TABLET DAILY PO
     Route: 048
     Dates: start: 20120201, end: 20120807

REACTIONS (8)
  - HEADACHE [None]
  - FEELING ABNORMAL [None]
  - SENSATION OF HEAVINESS [None]
  - MENTAL DISORDER [None]
  - NAUSEA [None]
  - PARAESTHESIA [None]
  - WEIGHT DECREASED [None]
  - FATIGUE [None]
